FAERS Safety Report 6928605-4 (Version None)
Quarter: 2010Q3

REPORT INFORMATION
  Report Type: 
  Country: None (occurrence: None)
  Receive Date: 20100817
  Receipt Date: 20100811
  Transmission Date: 20110219
  Serious: Yes (Hospitalization)
  Sender: FDA-Public Use
  Company Number: A0794829A

PATIENT
  Age: 42 Year
  Sex: Female

DRUGS (1)
  1. AVANDIA [Suspect]
     Indication: DIABETES MELLITUS
     Route: 048
     Dates: start: 20051206, end: 20070611

REACTIONS (4)
  - CARDIAC FAILURE CONGESTIVE [None]
  - COR PULMONALE [None]
  - PULMONARY EMBOLISM [None]
  - RENAL FAILURE [None]
